FAERS Safety Report 11231843 (Version 1)
Quarter: 2015Q3

REPORT INFORMATION
  Report Type: Spontaneous
  Country: US (occurrence: US)
  Receive Date: 20150701
  Receipt Date: 20150701
  Transmission Date: 20151125
  Serious: No
  Sender: FDA-Public Use
  Company Number: US-GLAXOSMITHKLINE-US2015091291

PATIENT
  Sex: Female

DRUGS (7)
  1. PANTOPRAZOLE [Concomitant]
     Active Substance: PANTOPRAZOLE SODIUM
  2. AROMASIN [Concomitant]
     Active Substance: EXEMESTANE
  3. POTASSIUM [Concomitant]
     Active Substance: POTASSIUM
  4. TYKERB [Suspect]
     Active Substance: LAPATINIB DITOSYLATE
     Indication: BREAST CANCER
     Dosage: 1000 MG, QD
     Route: 048
     Dates: start: 20150218
  5. COREG [Concomitant]
     Active Substance: CARVEDILOL
  6. ALTACE [Concomitant]
     Active Substance: RAMIPRIL
  7. LASIX [Concomitant]
     Active Substance: FUROSEMIDE

REACTIONS (1)
  - Pruritus [Not Recovered/Not Resolved]
